FAERS Safety Report 10145233 (Version 1)
Quarter: 2014Q2

REPORT INFORMATION
  Report Type: Spontaneous
  Country: US (occurrence: US)
  Receive Date: 20140501
  Receipt Date: 20140501
  Transmission Date: 20141212
  Serious: No
  Sender: FDA-Public Use
  Company Number: US-BIOGENIDEC-2014BI037091

PATIENT
  Age: 51 Year
  Sex: Female
  Weight: 68 kg

DRUGS (6)
  1. TECFIDERA [Suspect]
     Indication: MULTIPLE SCLEROSIS
     Route: 048
     Dates: start: 20140405
  2. TECFIDERA [Suspect]
     Indication: MULTIPLE SCLEROSIS
     Route: 048
  3. BACLOFEN [Concomitant]
  4. TRAZODONE [Concomitant]
  5. FLEXERIL [Concomitant]
  6. PROVIGIL [Concomitant]

REACTIONS (7)
  - Dry mouth [Unknown]
  - Fluid intake reduced [Unknown]
  - Balance disorder [Unknown]
  - Syncope [Unknown]
  - Underdose [Unknown]
  - Nausea [Unknown]
  - Hot flush [Recovered/Resolved]
